FAERS Safety Report 17981485 (Version 1)
Quarter: 2020Q3

REPORT INFORMATION
  Report Type: Spontaneous
  Country: IT (occurrence: IT)
  Receive Date: 20200706
  Receipt Date: 20200706
  Transmission Date: 20201103
  Serious: Yes (Other)
  Sender: FDA-Public Use
  Company Number: IT-AUROBINDO-AUR-APL-2020-031936

PATIENT
  Age: 76 Year
  Sex: Female

DRUGS (6)
  1. BARNIDIPINE HYDROCHLORIDE [Concomitant]
     Active Substance: BARNIDIPINE HYDROCHLORIDE
     Indication: HYPERTENSION
     Dosage: UNK
     Route: 048
  2. CEFIXIME. [Suspect]
     Active Substance: CEFIXIME
     Indication: URINARY TRACT INFECTION
     Dosage: 400 MILLIGRAM, ONCE A DAY
     Route: 065
     Dates: start: 20200622, end: 20200623
  3. XANAX [Concomitant]
     Active Substance: ALPRAZOLAM
     Indication: ANXIOLYTIC THERAPY
     Dosage: UNK
     Route: 048
  4. PANTOPRAZOLE [Concomitant]
     Active Substance: PANTOPRAZOLE
     Indication: PRODUCT USED FOR UNKNOWN INDICATION
     Dosage: UNK
     Route: 048
  5. INDAPAMIDE;PERINDOPRIL ARGININE [Concomitant]
     Active Substance: INDAPAMIDE\PERINDOPRIL ARGININE
     Indication: HYPERTENSION
     Dosage: 12.5 MILLIGRAM
     Route: 048
  6. SITAGLIPTIN [Concomitant]
     Active Substance: SITAGLIPTIN
     Indication: DIABETES MELLITUS
     Dosage: 100 MILLIGRAM
     Route: 048

REACTIONS (5)
  - Dyspnoea at rest [Recovering/Resolving]
  - Epigastric discomfort [Recovering/Resolving]
  - Vomiting [Recovering/Resolving]
  - Chest discomfort [Recovering/Resolving]
  - Drug hypersensitivity [Recovering/Resolving]

NARRATIVE: CASE EVENT DATE: 20200623
